FAERS Safety Report 22160204 (Version 1)
Quarter: 2023Q1

REPORT INFORMATION
  Report Type: Spontaneous
  Country: DE (occurrence: DE)
  Receive Date: 20230331
  Receipt Date: 20230331
  Transmission Date: 20230418
  Serious: Yes (Other)
  Sender: FDA-Public Use
  Company Number: DE-DCGMA-23200690

PATIENT
  Age: 30 Year
  Sex: Female

DRUGS (10)
  1. CIPROFLOXACIN [Suspect]
     Active Substance: CIPROFLOXACIN
     Indication: Product used for unknown indication
     Dosage: UNK
     Route: 065
     Dates: start: 20151130
  2. NORFLOXACIN [Suspect]
     Active Substance: NORFLOXACIN
     Indication: Product used for unknown indication
     Dosage: UNK
     Route: 065
     Dates: start: 20151113
  3. INFLUENZA VIRUS VACCINE [Suspect]
     Active Substance: INFLUENZA VIRUS VACCINE
     Indication: Immunisation
     Dosage: UNK
     Route: 065
  4. BCG VACCINE [Suspect]
     Active Substance: BCG VACCINE
     Indication: Immunisation
     Dosage: UNK
     Route: 065
  5. DIPHTHERIA AND TETANUS TOXOIDS AND PERTUSSIS VACCINE [Suspect]
     Active Substance: DIPHTHERIA AND TETANUS TOXOIDS AND PERTUSSIS VACCINE
     Indication: Immunisation
     Dosage: UNK
     Route: 065
  6. HEPATITIS B VIRUS VACCINE [Suspect]
     Active Substance: HEPATITIS B VIRUS VACCINE
     Indication: Immunisation
     Dosage: UNK
     Route: 065
  7. HEPATITIS B VIRUS VACCINE [Suspect]
     Active Substance: HEPATITIS B VIRUS VACCINE
     Indication: Immunisation
     Dosage: UNK
     Route: 065
  8. MEASLES-MUMPS-RUBELLA VIRUS VACCINE [Suspect]
     Active Substance: MEASLES-MUMPS-RUBELLA VIRUS VACCINE
     Indication: Immunisation
     Dosage: UNK
     Route: 065
  9. POLIOMYELITIS VACCINE [Suspect]
     Active Substance: POLIOMYELITIS VACCINE
     Indication: Immunisation
     Dosage: UNK
     Route: 065
  10. HEPATITIS B VIRUS VACCINE [Suspect]
     Active Substance: HEPATITIS B VIRUS VACCINE

REACTIONS (1)
  - Vaccination complication [Unknown]
